FAERS Safety Report 6032822-8 (Version None)
Quarter: 2009Q1

REPORT INFORMATION
  Report Type: 
  Country: None (occurrence: None)
  Receive Date: 20090105
  Receipt Date: 20080909
  Transmission Date: 20090719
  Serious: Yes (Hospitalization, Disabling, Other)
  Sender: FDA-Public Use
  Company Number: US-001858

PATIENT
  Age: 48 Year
  Sex: Male
  Weight: 93 kg

DRUGS (11)
  1. PROHANCE [Suspect]
     Indication: NUCLEAR MAGNETIC RESONANCE IMAGING
     Dosage: INTRAVENOUS
     Route: 042
     Dates: start: 20021016, end: 20021016
  2. MAGNEVIST [Suspect]
     Indication: NUCLEAR MAGNETIC RESONANCE IMAGING
     Dates: start: 20040716, end: 20040716
  3. RENAGEL [Concomitant]
  4. PHOSLO [Concomitant]
  5. LOMOTIL [Concomitant]
  6. TEMAZEPAM [Concomitant]
  7. INSULIN (INSULIN) [Concomitant]
  8. ACCUPRIL [Concomitant]
  9. CATAPRES PATCH (CLONIDINE) [Concomitant]
  10. ISOVUE-300 [Concomitant]
  11. TECHNETIUM 99 MM (MEDRONIC ACID / TECHNETIUM) [Concomitant]

REACTIONS (1)
  - NEPHROGENIC SYSTEMIC FIBROSIS [None]
